FAERS Safety Report 5452098-X (Version None)
Quarter: 2007Q3

REPORT INFORMATION
  Report Type: 
  Country: None (occurrence: None)
  Receive Date: 20070803
  Receipt Date: 20070327
  Transmission Date: 20080115
  Serious: Yes (Other)
  Sender: FDA-Public Use
  Company Number: 2007SP005637

PATIENT
  Age: 46 Year
  Sex: Female

DRUGS (4)
  1. INTRON A [Suspect]
     Indication: MALIGNANT MELANOMA
  2. COCAINE [Suspect]
     Indication: DRUG DEPENDENCE
  3. TYLENOL (CAPLET) [Suspect]
     Indication: SUICIDE ATTEMPT
  4. ALCOHOL [Suspect]
     Indication: SUICIDE ATTEMPT

REACTIONS (2)
  - HYPOAESTHESIA [None]
  - SUICIDE ATTEMPT [None]
